FAERS Safety Report 4829154-X (Version None)
Quarter: 2005Q4

REPORT INFORMATION
  Report Type: 
  Country: None (occurrence: None)
  Receive Date: 20051027
  Receipt Date: 20050105
  Transmission Date: 20060501
  Serious: Yes (Hospitalization)
  Sender: FDA-Public Use
  Company Number: USA-2005-0018285

PATIENT
  Age: 37 Year
  Sex: Male
  Weight: 133.8 kg

DRUGS (6)
  1. SPECTRACEF [Suspect]
     Indication: CELLULITIS
     Dosage: 200 MG, DAILY, UNKNOWN
     Route: 065
     Dates: start: 20041210, end: 20041217
  2. PRILOSEC [Concomitant]
  3. SINGULAIR [Concomitant]
  4. ALLEGRA [Concomitant]
  5. LEXAPRO [Concomitant]
  6. TOPAMAX [Concomitant]

REACTIONS (1)
  - CLOSTRIDIAL INFECTION [None]
